FAERS Safety Report 12594265 (Version 3)
Quarter: 2016Q4

REPORT INFORMATION
  Report Type: Spontaneous
  Country: US (occurrence: US)
  Receive Date: 20160726
  Receipt Date: 20161104
  Transmission Date: 20170207
  Serious: Yes (Hospitalization)
  Sender: FDA-Public Use
  Company Number: US-PFIZER INC-2016353052

PATIENT
  Age: 59 Year
  Sex: Female
  Weight: 85 kg

DRUGS (13)
  1. CITALOPRAM HYDROBROMIDE. [Concomitant]
     Active Substance: CITALOPRAM HYDROBROMIDE
     Dosage: 10 MG, DAILY
     Route: 048
     Dates: start: 20150622
  2. MOBIC [Concomitant]
     Active Substance: MELOXICAM
     Indication: BACK PAIN
  3. MOBIC [Concomitant]
     Active Substance: MELOXICAM
     Indication: HYPERTENSION
     Dosage: 7.5 MG, 2X/DAY (15MG,1/2 TABLET)
     Route: 048
     Dates: start: 20151107
  4. ESTER-C [Concomitant]
     Active Substance: CALCIUM\VITAMINS
     Dosage: UNK, DAILY
     Route: 048
  5. FOLIC ACID. [Concomitant]
     Active Substance: FOLIC ACID
     Dosage: 800 UG, DAILY
     Route: 048
  6. POTASSIUM GLUCONATE [Concomitant]
     Active Substance: POTASSIUM GLUCONATE
     Dosage: 595 MG, DAILY
     Route: 048
  7. CLONIDINE HCL [Concomitant]
     Active Substance: CLONIDINE HYDROCHLORIDE
     Indication: HYPERTENSION
     Dosage: 0.1 MG, AS NEEDED
     Route: 048
  8. LYRICA [Suspect]
     Active Substance: PREGABALIN
     Dosage: 25 MG, 2X/DAY
     Route: 048
  9. CALCIUM + VIT D [Concomitant]
     Active Substance: CALCIUM\VITAMIN D
     Dosage: CALCIUM: 250;VITAMIN D: 125
     Route: 048
  10. METHOCARBAMOL. [Concomitant]
     Active Substance: METHOCARBAMOL
     Indication: BACK PAIN
     Dosage: 375 MG, AS NEEDED
     Route: 048
     Dates: start: 20150914
  11. PANTOPRAZOLE SODIUM. [Concomitant]
     Active Substance: PANTOPRAZOLE SODIUM
     Dosage: 40 MG, DAILY
     Route: 048
  12. FISH OIL [Concomitant]
     Active Substance: FISH OIL
     Dosage: 1200 MG, 3X/DAY
     Route: 048
  13. CLONIDINE HCL [Concomitant]
     Active Substance: CLONIDINE HYDROCHLORIDE
     Dosage: 0.1 MG, DAILY

REACTIONS (3)
  - Fall [Recovering/Resolving]
  - Spinal column injury [Recovering/Resolving]
  - Back injury [Unknown]
